FAERS Safety Report 9848968 (Version 1)
Quarter: 2014Q1

REPORT INFORMATION
  Report Type: Spontaneous
  Country: US (occurrence: None)
  Receive Date: 20140124
  Receipt Date: 20140124
  Transmission Date: 20141002
  Serious: Yes (Hospitalization)
  Sender: FDA-Public Use
  Company Number: None

PATIENT
  Age: 64 Year
  Sex: Male
  Weight: 77.4 kg

DRUGS (2)
  1. FLUOROURACIL [Suspect]
  2. OXALIPLATIN [Suspect]

REACTIONS (10)
  - Atrial flutter [None]
  - Neutropenia [None]
  - Anaemia [None]
  - Drug ineffective [None]
  - Faecal volume increased [None]
  - Hypokalaemia [None]
  - Hypocalcaemia [None]
  - Hypomagnesaemia [None]
  - Hypotension [None]
  - Bacterial infection [None]
